FAERS Safety Report 9061700 (Version 3)
Quarter: 2013Q1

REPORT INFORMATION
  Report Type: Spontaneous
  Country: BE (occurrence: BE)
  Receive Date: 20130204
  Receipt Date: 20130228
  Transmission Date: 20140127
  Serious: Yes (Other)
  Sender: FDA-Public Use
  Company Number: PHHY2013BE008790

PATIENT
  Sex: Male

DRUGS (4)
  1. AFINITOR [Suspect]
     Indication: METASTATIC RENAL CELL CARCINOMA
     Dosage: 10 MG, QD
     Route: 048
     Dates: start: 20130115, end: 20130125
  2. AFINITOR [Suspect]
     Dosage: 5 MG
  3. ZOMETA [Suspect]
     Indication: METASTASES TO BONE
     Dosage: 4 MG, QMO
     Dates: start: 200905, end: 201010
  4. SUTENT [Suspect]
     Indication: METASTATIC RENAL CELL CARCINOMA
     Dosage: 50 MG FOR 28/42 DAYS
     Dates: start: 200905, end: 20130110

REACTIONS (14)
  - Osteonecrosis of jaw [Not Recovered/Not Resolved]
  - Neuralgia [Not Recovered/Not Resolved]
  - Hypoaesthesia [Not Recovered/Not Resolved]
  - Bone lesion [Unknown]
  - Erythema [Unknown]
  - Gingival swelling [Recovering/Resolving]
  - Pain [Unknown]
  - Gingival infection [Unknown]
  - Infection [Unknown]
  - Fistula [Unknown]
  - Exposed bone in jaw [Unknown]
  - Primary sequestrum [Recovering/Resolving]
  - Cellulitis [Unknown]
  - Oral cavity fistula [Unknown]
